FAERS Safety Report 14653161 (Version 1)
Quarter: 2018Q1

REPORT INFORMATION
  Report Type: Spontaneous
  Country: US (occurrence: US)
  Receive Date: 20180319
  Receipt Date: 20180319
  Transmission Date: 20180509
  Serious: Yes (Other)
  Sender: FDA-Public Use
  Company Number: US-CIPLA LTD.-2013US00856

PATIENT

DRUGS (3)
  1. HUMAN ALBUMIN/PACLITAXEL [Suspect]
     Active Substance: PACLITAXEL
     Indication: BREAST CANCER METASTATIC
     Dosage: WEEKLY 100 MG/M2 ON DAYS 1, 8, 15, OF A 28-DAY CYCLE
  2. CARBOPLATIN. [Suspect]
     Active Substance: CARBOPLATIN
     Indication: BREAST CANCER METASTATIC
     Dosage: WEEKLY, AREA UNDER THE CURVE EQUALS TO 2 ON DAYS 1, 8, 15 OF A 28-DAY CYCLE
  3. BEVACIZUMAB. [Suspect]
     Active Substance: BEVACIZUMAB
     Indication: BREAST CANCER METASTATIC
     Dosage: BIWEEKLY, 10 MG/KG ON DAYS 1, 15 OF A 28-DAY CYCLE

REACTIONS (1)
  - Febrile neutropenia [Unknown]
